FAERS Safety Report 11092456 (Version 1)
Quarter: 2015Q2

REPORT INFORMATION
  Report Type: Report from Study
  Country: JP (occurrence: None)
  Receive Date: 20150504
  Receipt Date: 20150504
  Transmission Date: 20150821
  Serious: Yes (Hospitalization, Other)
  Sender: FDA-Public Use
  Company Number: 2009JP000045

PATIENT
  Age: 70 Year
  Sex: Female

DRUGS (22)
  1. BAYASPIRIN (ACETYLSALICYLIC ACID) (ACETYLSALICYLIC ACID) [Concomitant]
     Active Substance: ASPIRIN
  2. ENBREL [Concomitant]
     Active Substance: ETANERCEPT
  3. ISCOTIN (ISONIAZID) [Concomitant]
  4. PARIET (RABEPRAZOLE SODIUM) (20 MG, GASTRO-RESISTANT TABLET) (RABEPRAZOLE SODIUM) [Concomitant]
     Active Substance: RABEPRAZOLE SODIUM
  5. BONOTEO (MINODRONIC ACID) [Concomitant]
  6. BLOPRESS (CANDESARTAN CILEXETIL) [Concomitant]
     Active Substance: CANDESARTAN CILEXETIL
  7. SELBEX (TEPRENONE) [Concomitant]
     Active Substance: TEPRENONE
  8. MAGMITT (MAGNESIUM OXIDE) [Concomitant]
     Active Substance: MAGNESIUM OXIDE
  9. CALSLOT (MANIDIPINE HYDROCHLORIDE) [Concomitant]
  10. HYPEN /00613801/ (ETODOLAC) [Concomitant]
  11. PREDNISOLONE (PREDNISOLONE) PER ORAL NOS [Suspect]
     Active Substance: PREDNISOLONE
     Indication: LUPUS NEPHRITIS
     Route: 048
     Dates: start: 20080105, end: 20080131
  12. ALFAROL [Concomitant]
     Active Substance: ALFACALCIDOL
  13. CYTOTEC (MISOPROSTOL) [Concomitant]
  14. LUPRAC (TORASEMIDE) [Concomitant]
     Active Substance: TORSEMIDE
  15. FOSAMAC (ALENDRONATE SODIUM) [Concomitant]
  16. HUMIRA [Concomitant]
     Active Substance: ADALIMUMAB
  17. TACROLIMUS CAPSULES (TACROLIMUS) CAPSULE [Suspect]
     Active Substance: TACROLIMUS
     Indication: LUPUS NEPHRITIS
     Route: 048
     Dates: start: 20080201, end: 20080214
  18. MEVALOTIN  (PRAVASTATIN SODIUM) [Concomitant]
     Active Substance: PRAVASTATIN SODIUM
  19. CONIEL (BENIDIPINE HYDROCHLORIDE) (BENIDIPINE HYDROCHLORIDE) [Concomitant]
     Active Substance: BENIDIPINE HYDROCHLORIDE
  20. WARFARIN /00014803/ (WARFARIN POTASSIUM) [Concomitant]
  21. BREDININ (MIZORIBINE) [Concomitant]
     Active Substance: MIZORIBINE
  22. CELECOX (CELECOXIB) [Concomitant]
     Active Substance: CELECOXIB

REACTIONS (5)
  - Constipation [None]
  - Diabetes mellitus [None]
  - Rheumatoid arthritis [None]
  - Spinal compression fracture [None]
  - Spinal osteoarthritis [None]

NARRATIVE: CASE EVENT DATE: 20080216
